FAERS Safety Report 13564397 (Version 4)
Quarter: 2017Q4

REPORT INFORMATION
  Report Type: Spontaneous
  Country: US (occurrence: US)
  Receive Date: 20170519
  Receipt Date: 20171124
  Transmission Date: 20180320
  Serious: Yes (Death, Hospitalization, Other)
  Sender: FDA-Public Use
  Company Number: US-PFIZER INC-2017212774

PATIENT
  Age: 31 Year
  Sex: Male
  Weight: 73 kg

DRUGS (3)
  1. REVATIO [Suspect]
     Active Substance: SILDENAFIL CITRATE
     Indication: LUNG DISORDER
     Dosage: 20 MG TABLET, 2 TABLETS THREE TIMES PER DAY
  2. REVATIO [Suspect]
     Active Substance: SILDENAFIL CITRATE
     Dosage: UNK UNK, 3X/DAY; (20MG IN MORNING AND AFTERNOON; 60MG AT NIGHT)
     Dates: start: 2014
  3. REVATIO [Suspect]
     Active Substance: SILDENAFIL CITRATE
     Dosage: UNK, 3X/DAY (1 IN THE MORNING, 1 AT 3:00PM, 2 AT NIGHT)

REACTIONS (4)
  - Cough [Not Recovered/Not Resolved]
  - Product use issue [Unknown]
  - Pneumonia [Fatal]
  - Acute respiratory distress syndrome [Fatal]

NARRATIVE: CASE EVENT DATE: 2014
